FAERS Safety Report 14616543 (Version 1)
Quarter: 2018Q1

REPORT INFORMATION
  Report Type: Spontaneous
  Country: FR (occurrence: FR)
  Receive Date: 20180309
  Receipt Date: 20180309
  Transmission Date: 20180509
  Serious: Yes (Death)
  Sender: FDA-Public Use
  Company Number: FR-STRIDES ARCOLAB LIMITED-2018SP001612

PATIENT

DRUGS (5)
  1. INTERFERON [Suspect]
     Active Substance: INTERFERON
     Indication: KAPOSI^S SARCOMA
     Dosage: UNK
     Route: 065
  2. DAUNORUBICIN [Suspect]
     Active Substance: DAUNORUBICIN
     Indication: KAPOSI^S SARCOMA
     Dosage: UNK
     Route: 065
  3. IMIQUIMOD. [Suspect]
     Active Substance: IMIQUIMOD
     Indication: KAPOSI^S SARCOMA
     Dosage: UNK
     Route: 065
  4. VINBLASTINE [Suspect]
     Active Substance: VINBLASTINE
     Indication: KAPOSI^S SARCOMA
     Dosage: UNK
     Route: 065
  5. PACLITAXEL. [Suspect]
     Active Substance: PACLITAXEL
     Indication: KAPOSI^S SARCOMA
     Dosage: UNK
     Route: 065

REACTIONS (3)
  - Off label use [Unknown]
  - Malignant transformation [Fatal]
  - Kaposi^s sarcoma [Fatal]
